FAERS Safety Report 5566338-X (Version None)
Quarter: 2007Q4

REPORT INFORMATION
  Report Type: 
  Country: None (occurrence: None)
  Receive Date: 20071219
  Receipt Date: 20071212
  Transmission Date: 20080405
  Serious: Yes (Hospitalization)
  Sender: FDA-Public Use
  Company Number: US-BRISTOL-MYERS SQUIBB COMPANY-14000533

PATIENT
  Age: 42 Year
  Sex: Female
  Weight: 72 kg

DRUGS (28)
  1. OXALIPLATIN [Suspect]
     Indication: COLORECTAL CANCER METASTATIC
     Dosage: D13,D15 OF 28 DAY CYCLE
     Route: 042
     Dates: start: 20070612, end: 20071126
  2. BEVACIZUMAB [Suspect]
     Indication: COLORECTAL CANCER METASTATIC
     Dosage: D13,D15 OF 28 DAY CYCLE
     Route: 042
     Dates: start: 20070612, end: 20071126
  3. FLUOROURACIL [Suspect]
     Indication: COLORECTAL CANCER METASTATIC
     Dosage: D1+ D15 OF 28 DAY CYCLE, 4300MG IV
     Route: 040
     Dates: start: 20070612, end: 20071126
  4. FLUOROURACIL [Suspect]
     Route: 041
     Dates: start: 20070612, end: 20071126
  5. LEUCOVORIN CALCIUM [Suspect]
     Indication: COLORECTAL CANCER METASTATIC
     Dosage: D13,D15 OF 28 DAY CYCLE
     Route: 042
     Dates: start: 20070612, end: 20071126
  6. ADVAIR DISKUS 100/50 [Concomitant]
     Indication: ASTHMA
     Dosage: 1 DOSAGE FORM = 500/50
     Route: 055
     Dates: start: 20071025
  7. XOPENEX [Concomitant]
     Indication: ASTHMA
     Dosage: ROUTE OF ADMINISTRATION IS VIA NEBULIZER
     Dates: start: 20071025
  8. WELLBUTRIN [Concomitant]
     Indication: DEPRESSION
     Route: 048
     Dates: start: 20070916
  9. ADDERALL 10 [Concomitant]
     Indication: ATTENTION DEFICIT/HYPERACTIVITY DISORDER
     Route: 048
     Dates: start: 20070216
  10. MARINOL [Concomitant]
     Indication: ANOREXIA
     Dosage: TAKEN AS BID
     Route: 048
     Dates: start: 20070815
  11. MARINOL [Concomitant]
     Indication: NAUSEA
     Dosage: TAKEN AS BID
     Route: 048
     Dates: start: 20070815
  12. FOLIC ACID [Concomitant]
     Indication: NUTRITIONAL SUPPORT
     Route: 048
     Dates: start: 20070301
  13. TEMAZEPAM [Concomitant]
     Indication: INSOMNIA
     Dosage: 1 DOSE AT BEDTIME.
     Route: 048
     Dates: start: 20070531
  14. HYDROCODONE BITARTRATE AND ACETAMINOPHEN [Concomitant]
     Indication: PAIN
     Dosage: 1 DOSAGE FORM = 7.5/325MG
     Route: 048
     Dates: start: 20070531
  15. VITAMIN CAP [Concomitant]
     Indication: NUTRITIONAL SUPPORT
     Route: 048
     Dates: start: 20070501
  16. ZOFRAN [Concomitant]
     Route: 048
     Dates: start: 20070612
  17. VITAMIN B6 [Concomitant]
     Indication: NEUROPATHY
     Route: 048
     Dates: start: 20070712
  18. XANAX [Concomitant]
     Dates: start: 20070709
  19. NEURONTIN [Concomitant]
     Indication: NEUROPATHY
     Route: 048
     Dates: start: 20070709
  20. GLUTAMINE [Concomitant]
     Indication: NEUROPATHY
     Dosage: TWICE A DAY FOR 1 WEEK POST TREATMENT.
     Route: 048
     Dates: start: 20070712
  21. NORVASC [Concomitant]
     Indication: HYPERTENSION
     Route: 048
     Dates: start: 20070904
  22. PREVACID [Concomitant]
     Indication: DYSPEPSIA
     Route: 048
     Dates: start: 20070904
  23. EMEND [Concomitant]
     Indication: NAUSEA
     Dosage: 125/80/800 TWICE A DAY ON D1,D2, AND D3 OF TREATMENT.
     Dates: start: 20071017
  24. DECADRON [Concomitant]
     Indication: NAUSEA
     Dosage: TWICE A DAY ON D1, D2,D3, D4, D5, AND D6 OF TREATMENT.
     Route: 048
     Dates: start: 20071017
  25. REGLAN [Concomitant]
     Indication: NAUSEA
     Route: 048
     Dates: start: 20071017
  26. TESSALON [Concomitant]
     Indication: COUGH
     Route: 048
     Dates: start: 20070904
  27. ATIVAN [Concomitant]
     Indication: NAUSEA
     Route: 048
     Dates: start: 20071017
  28. PROZAC [Concomitant]

REACTIONS (1)
  - INTERSTITIAL LUNG DISEASE [None]
